FAERS Safety Report 8835978 (Version 3)
Quarter: 2012Q4

REPORT INFORMATION
  Report Type: Report from Study
  Country: FR (occurrence: FR)
  Receive Date: 20121011
  Receipt Date: 20121205
  Transmission Date: 20130627
  Serious: Yes (Hospitalization)
  Sender: FDA-Public Use
  Company Number: FR-009507513-1210FRA003887

PATIENT
  Age: 52 Year
  Sex: Male
  Weight: 67 kg

DRUGS (12)
  1. BOCEPREVIR [Suspect]
     Indication: HEPATITIS C
     Dosage: 800 mg, tid
     Dates: start: 20120723, end: 20121007
  2. PEGASYS [Suspect]
     Indication: HEPATITIS C
     Dosage: 180 Microgram, qw
     Dates: start: 20120626, end: 20121001
  3. COPEGUS [Suspect]
     Indication: HEPATITIS C
     Dosage: 1000 mg, qd
     Dates: start: 20120626, end: 20120729
  4. COPEGUS [Suspect]
     Dosage: 800 mg, qd
     Dates: start: 20120730, end: 20120916
  5. COPEGUS [Suspect]
     Dosage: 600 mg, qd
     Dates: start: 20120917, end: 20121007
  6. FUROSEMIDE [Concomitant]
     Indication: ASCITES
     Dosage: 20 mg, qd
     Dates: start: 201204
  7. SPIRONOLACTONE [Concomitant]
     Indication: ASCITES
     Dosage: 75 mg, qd
     Dates: start: 20120917
  8. LEVOCETIRIZINE [Concomitant]
     Indication: PRURITUS
     Dosage: 5 mg, qd
     Dates: start: 20120929
  9. RACECADOTRIL [Concomitant]
     Indication: DIARRHOEA
     Dosage: 100 mg, tid
     Dates: start: 20120806
  10. FERROUS SULFATE [Concomitant]
     Indication: ANAEMIA
     Dosage: 2 DF, qd
     Dates: start: 20120917
  11. EPOETIN BETA [Concomitant]
     Indication: ANAEMIA
     Dosage: 30000 IU, qw
     Dates: start: 20120917
  12. POTASSIUM CHLORIDE [Concomitant]
     Indication: HYPOKALAEMIA
     Dosage: 1000 mg, qd
     Dates: start: 20120806

REACTIONS (2)
  - Abdominal pain [Recovered/Resolved]
  - Ascites [Recovered/Resolved]
